FAERS Safety Report 4453016-3 (Version None)
Quarter: 2004Q3

REPORT INFORMATION
  Report Type: 
  Country: None (occurrence: None)
  Receive Date: 20040916
  Receipt Date: 20040908
  Transmission Date: 20050211
  Serious: Yes (Life-Threatening, Hospitalization)
  Sender: FDA-Public Use
  Company Number: 2004232476US

PATIENT
  Age: 44 Year
  Sex: Female
  Weight: 59 kg

DRUGS (4)
  1. BEXTRA [Suspect]
     Indication: POSTOPERATIVE ANALGESIA
     Dosage: 20 MG, BID, ORAL
     Route: 048
     Dates: start: 20030904, end: 20030911
  2. MIDAZOLAM HCL [Concomitant]
  3. FENTANYL [Concomitant]
  4. PROPOFOL [Concomitant]

REACTIONS (1)
  - CHOLECYSTITIS ACUTE [None]
